FAERS Safety Report 8083901-5 (Version None)
Quarter: 2012Q1

REPORT INFORMATION
  Report Type: 
  Country: None (occurrence: None)
  Receive Date: 20120128
  Receipt Date: 20110307
  Transmission Date: 20120608
  Serious: No
  Sender: FDA-Public Use
  Company Number: US-ABBOTT-11P-163-0702424-00

PATIENT
  Sex: Female
  Weight: 66.284 kg

DRUGS (14)
  1. MULTI-VITAMIN [Concomitant]
     Indication: PRODUCT USED FOR UNKNOWN INDICATION
  2. FLEXERIL [Concomitant]
     Indication: PRODUCT USED FOR UNKNOWN INDICATION
  3. VICODIN [Concomitant]
     Indication: PRODUCT USED FOR UNKNOWN INDICATION
     Dosage: AS NEEDED
  4. ZITHROMAX [Concomitant]
     Indication: UPPER RESPIRATORY TRACT INFECTION
     Dates: start: 20101204, end: 20101209
  5. WELCHOL [Concomitant]
     Indication: DIARRHOEA
  6. PREDNISONE TAB [Concomitant]
     Indication: CROHN'S DISEASE
  7. PERCOCET [Concomitant]
     Indication: PAIN
  8. FLOMAX [Concomitant]
     Indication: PRODUCT USED FOR UNKNOWN INDICATION
  9. ASPIRIN [Concomitant]
     Indication: PRODUCT USED FOR UNKNOWN INDICATION
  10. VITAMIN D [Concomitant]
     Indication: PRODUCT USED FOR UNKNOWN INDICATION
  11. CYMBALTA [Concomitant]
     Indication: DEPRESSION
  12. HUMIRA [Suspect]
     Indication: CROHN'S DISEASE
     Dates: start: 20101117
  13. PENTASA [Concomitant]
     Indication: PRODUCT USED FOR UNKNOWN INDICATION
  14. PHENERGAN [Concomitant]
     Indication: NAUSEA

REACTIONS (5)
  - NAUSEA [None]
  - FIBROMYALGIA [None]
  - CONSTIPATION [None]
  - MUSCULOSKELETAL PAIN [None]
  - INJECTION SITE PAIN [None]
